FAERS Safety Report 7549969-7 (Version None)
Quarter: 2011Q2

REPORT INFORMATION
  Report Type: 
  Country: None (occurrence: None)
  Receive Date: 20110615
  Receipt Date: 20110613
  Transmission Date: 20111010
  Serious: Yes (Death)
  Sender: FDA-Public Use
  Company Number: US-PFIZER INC-2011129942

PATIENT
  Sex: Male

DRUGS (1)
  1. SUTENT [Suspect]
     Indication: SPINDLE CELL SARCOMA

REACTIONS (6)
  - SPINDLE CELL SARCOMA [None]
  - DISEASE PROGRESSION [None]
  - DECREASED APPETITE [None]
  - ORAL PAIN [None]
  - PAIN IN EXTREMITY [None]
  - FATIGUE [None]
